FAERS Safety Report 25984751 (Version 1)
Quarter: 2025Q4

REPORT INFORMATION
  Report Type: Spontaneous
  Country: EU (occurrence: EU)
  Receive Date: 20251031
  Receipt Date: 20251031
  Transmission Date: 20260118
  Serious: Yes (Other)
  Sender: BRISTOL MYERS SQUIBB
  Company Number: EU-BRISTOL-MYERS SQUIBB COMPANY-2025-147497

PATIENT
  Age: 60 Year
  Sex: Female

DRUGS (5)
  1. IPILIMUMAB [Suspect]
     Active Substance: IPILIMUMAB
     Indication: Malignant melanoma
     Dosage: FIRST DOSE
  2. IPILIMUMAB [Suspect]
     Active Substance: IPILIMUMAB
     Dosage: THIRD DOSE
  3. NIVOLUMAB [Suspect]
     Active Substance: NIVOLUMAB
     Indication: Malignant melanoma
     Dosage: FIRST DOSE
  4. NIVOLUMAB [Suspect]
     Active Substance: NIVOLUMAB
     Dosage: THIRD DOSE
  5. NIVOLUMAB [Suspect]
     Active Substance: NIVOLUMAB
     Dosage: NIVOLUMAB AS MONOTHERAPY

REACTIONS (2)
  - Metastases to bone [Unknown]
  - Immune-mediated enterocolitis [Unknown]

NARRATIVE: CASE EVENT DATE: 20210301
